FAERS Safety Report 9227531 (Version 1)
Quarter: 2013Q2

REPORT INFORMATION
  Report Type: Spontaneous
  Country: US (occurrence: None)
  Receive Date: 20130411
  Receipt Date: 20130411
  Transmission Date: 20140414
  Serious: Yes (Hospitalization)
  Sender: FDA-Public Use
  Company Number: None

PATIENT
  Age: 59 Year
  Sex: Female
  Weight: 66.8 kg

DRUGS (13)
  1. MORPHINE [Suspect]
     Indication: PROCEDURAL PAIN
     Route: 042
  2. PERCOCET [Suspect]
     Indication: PROCEDURAL PAIN
     Route: 042
  3. ASA [Concomitant]
  4. WELLBUTRIN [Concomitant]
  5. CA +VITD [Concomitant]
  6. NEURONTIN [Concomitant]
  7. LISINOPRIL [Concomitant]
  8. LORATADINE [Concomitant]
  9. MAG OX [Concomitant]
  10. TOPROL XL [Concomitant]
  11. PROTONIX [Concomitant]
  12. PRAVASTATIN [Concomitant]
  13. VIT E [Concomitant]

REACTIONS (3)
  - Unresponsive to stimuli [None]
  - No therapeutic response [None]
  - Drug hypersensitivity [None]
